FAERS Safety Report 7287181-X (Version None)
Quarter: 2011Q1

REPORT INFORMATION
  Report Type: 
  Country: None (occurrence: None)
  Receive Date: 20110211
  Receipt Date: 20110131
  Transmission Date: 20110831
  Serious: Yes (Hospitalization, Other)
  Sender: FDA-Public Use
  Company Number: US-ROCHE-692322

PATIENT
  Sex: Female

DRUGS (6)
  1. COPEGUS [Suspect]
     Indication: HEPATITIS C
     Route: 048
     Dates: start: 20100226
  2. COPEGUS [Suspect]
     Route: 048
     Dates: end: 20100708
  3. NEXIUM [Concomitant]
     Dates: start: 20100310
  4. PAXIL [Concomitant]
     Dates: start: 20090101
  5. PEGASYS [Suspect]
     Indication: HEPATITIS C
     Route: 058
     Dates: start: 20100226
  6. PEGASYS [Suspect]
     Route: 058
     Dates: start: 20100409, end: 20100708

REACTIONS (19)
  - FATIGUE [None]
  - POST PROCEDURAL INFECTION [None]
  - PYREXIA [None]
  - NO THERAPEUTIC RESPONSE [None]
  - CHOLELITHIASIS [None]
  - CHEST PAIN [None]
  - PANCYTOPENIA [None]
  - ASTHENIA [None]
  - NAUSEA [None]
  - WHITE BLOOD CELL COUNT DECREASED [None]
  - GALLBLADDER POLYP [None]
  - INFECTION [None]
  - DYSPNOEA [None]
  - ANAEMIA [None]
  - SEPSIS [None]
  - VIRAL PHARYNGITIS [None]
  - ODYNOPHAGIA [None]
  - VIRAL LOAD INCREASED [None]
  - DRY SKIN [None]
